FAERS Safety Report 6356025-2 (Version None)
Quarter: 2009Q3

REPORT INFORMATION
  Report Type: 
  Country: None (occurrence: None)
  Receive Date: 20090910
  Receipt Date: 20090910
  Transmission Date: 20100115
  Serious: Yes (Hospitalization)
  Sender: FDA-Public Use
  Company Number: None

PATIENT
  Age: 52 Year
  Sex: Male
  Weight: 80.74 kg

DRUGS (2)
  1. QUETIAPINE FUMARATE [Suspect]
     Indication: BIPOLAR DISORDER
     Dosage: 200 MG AT BEDTIME PO
     Route: 048
     Dates: start: 20090811, end: 20090902
  2. QUETIAPINE FUMARATE [Suspect]
     Indication: MANIA
     Dosage: 200 MG AT BEDTIME PO
     Route: 048
     Dates: start: 20090811, end: 20090902

REACTIONS (8)
  - CARDIAC DISORDER [None]
  - DEHYDRATION [None]
  - DRUG WITHDRAWAL SYNDROME [None]
  - FALL [None]
  - NERVOUS SYSTEM DISORDER [None]
  - ORTHOSTATIC HYPOTENSION [None]
  - SOMNAMBULISM [None]
  - SYNCOPE [None]
